APPROVED DRUG PRODUCT: CEFIZOX
Active Ingredient: CEFTIZOXIME SODIUM
Strength: EQ 2GM BASE/VIAL
Dosage Form/Route: INJECTABLE;INJECTION
Application: A063294 | Product #003
Applicant: ASTELLAS PHARMA US INC
Approved: Mar 31, 1994 | RLD: No | RS: No | Type: DISCN